FAERS Safety Report 9837507 (Version 2)
Quarter: 2014Q1

REPORT INFORMATION
  Report Type: Spontaneous
  Country: US (occurrence: US)
  Receive Date: 20140123
  Receipt Date: 20140123
  Transmission Date: 20141002
  Serious: Yes (Hospitalization, Other)
  Sender: FDA-Public Use
  Company Number: US-JNJFOC-20131016399

PATIENT
  Sex: Female
  Weight: 49.44 kg

DRUGS (18)
  1. XARELTO [Suspect]
     Indication: DEEP VEIN THROMBOSIS
     Route: 048
     Dates: start: 2013
  2. XARELTO [Suspect]
     Indication: DEEP VEIN THROMBOSIS
     Route: 048
     Dates: start: 2013, end: 2013
  3. ASPIRIN [Suspect]
     Indication: PRODUCT USED FOR UNKNOWN INDICATION
     Route: 048
  4. TUMS [Concomitant]
     Route: 048
  5. LEXAPRO [Concomitant]
     Route: 048
  6. FOLVITE [Concomitant]
     Route: 048
  7. NU-IRON [Concomitant]
     Route: 048
  8. SYNTHROID [Concomitant]
     Route: 048
  9. COZAAR [Concomitant]
     Route: 048
  10. THERAGRAN [Concomitant]
     Route: 048
  11. BYSTOLIC [Concomitant]
     Route: 048
  12. EXELON [Concomitant]
     Route: 065
  13. ALDACTONE [Concomitant]
     Route: 048
  14. MICARDIS [Concomitant]
     Route: 048
  15. CIPROFLOXACIN [Concomitant]
     Route: 042
  16. PANTOPRAZOLE [Concomitant]
     Route: 042
  17. SODIUM CHLORIDE [Concomitant]
     Dosage: 75 ML/HR
     Route: 065
     Dates: start: 20131023, end: 20131023
  18. PROMETHAZINE [Concomitant]
     Route: 040

REACTIONS (9)
  - Upper gastrointestinal haemorrhage [Unknown]
  - Haemorrhagic anaemia [Unknown]
  - Cardiomegaly [Unknown]
  - Dementia [Unknown]
  - Hiatus hernia [Unknown]
  - Urinary tract infection [Not Recovered/Not Resolved]
  - Melaena [Unknown]
  - Rectal haemorrhage [Unknown]
  - Faecaloma [Unknown]
